FAERS Safety Report 10838425 (Version 1)
Quarter: 2015Q1

REPORT INFORMATION
  Report Type: Report from Study
  Country: US (occurrence: US)
  Receive Date: 20150219
  Receipt Date: 20150219
  Transmission Date: 20150721
  Serious: No
  Sender: FDA-Public Use
  Company Number: US-ABBVIE-14P-163-1222737-00

PATIENT
  Age: 57 Year

DRUGS (1)
  1. HUMIRA [Suspect]
     Active Substance: ADALIMUMAB
     Indication: RHEUMATOID ARTHRITIS
     Dosage: HUMIRA PSORIASIS STARTER PACK
     Dates: start: 20140306

REACTIONS (1)
  - Rash [Unknown]

NARRATIVE: CASE EVENT DATE: 20140407
